FAERS Safety Report 5784280-6 (Version None)
Quarter: 2008Q2

REPORT INFORMATION
  Report Type: 
  Country: None (occurrence: None)
  Receive Date: 20080624
  Receipt Date: 20070425
  Transmission Date: 20081010
  Serious: No
  Sender: FDA-Public Use
  Company Number: US-ASTRAZENECA-2007UW08113

PATIENT
  Age: 74 Year
  Sex: Female

DRUGS (1)
  1. PULMICORT [Suspect]
     Indication: ASTHMA
     Route: 055

REACTIONS (1)
  - ASTHMA [None]
